FAERS Safety Report 8496599-9 (Version None)
Quarter: 2012Q3

REPORT INFORMATION
  Report Type: 
  Country: None (occurrence: None)
  Receive Date: 20120709
  Receipt Date: 20120702
  Transmission Date: 20120928
  Serious: Yes (Hospitalization)
  Sender: FDA-Public Use
  Company Number: US-US-EMD SERONO, INC.-7122073

PATIENT
  Sex: Male
  Weight: 88 kg

DRUGS (2)
  1. REBIF [Suspect]
     Indication: MULTIPLE SCLEROSIS
     Route: 058
     Dates: start: 20111024, end: 20120407
  2. REBIF [Suspect]
     Route: 058
     Dates: end: 20120407

REACTIONS (3)
  - SWELLING FACE [None]
  - ABDOMINAL DISTENSION [None]
  - CONVULSION [None]
